FAERS Safety Report 25065122 (Version 2)
Quarter: 2025Q2

REPORT INFORMATION
  Report Type: Spontaneous
  Country: JP (occurrence: JP)
  Receive Date: 20250311
  Receipt Date: 20250404
  Transmission Date: 20250716
  Serious: No
  Sender: MERCK SHARP AND DOHME
  Company Number: JP-009507513-2262969

PATIENT
  Age: 73 Year
  Sex: Male

DRUGS (1)
  1. MOLNUPIRAVIR [Suspect]
     Active Substance: MOLNUPIRAVIR

REACTIONS (2)
  - Therapy non-responder [Unknown]
  - Incorrect product administration duration [Unknown]
